FAERS Safety Report 18918012 (Version 1)
Quarter: 2021Q1

REPORT INFORMATION
  Report Type: Report from Study
  Country: BR (occurrence: BR)
  Receive Date: 20210219
  Receipt Date: 20210219
  Transmission Date: 20210420
  Serious: Yes (Other)
  Sender: FDA-Public Use
  Company Number: BR-TAKEDA-BR202028900

PATIENT
  Age: 12 Year
  Sex: Male
  Weight: 42 kg

DRUGS (2)
  1. FACTOR VIII INHIBITOR BYPASSING FRACTION; BAXJECT II NF [Suspect]
     Active Substance: ANTI-INHIBITOR COAGULANT COMPLEX
     Indication: FACTOR VIII DEFICIENCY
     Dosage: 2500 INTERNATIONAL UNIT, 3/WEEK
     Route: 042
     Dates: start: 20180614
  2. FACTOR VIII INHIBITOR BYPASSING FRACTION; BAXJECT II NF [Suspect]
     Active Substance: ANTI-INHIBITOR COAGULANT COMPLEX
     Dosage: 3000 UNK
     Route: 042
     Dates: start: 2014

REACTIONS (8)
  - Haematoma [Unknown]
  - Weight increased [Unknown]
  - Discomfort [Recovering/Resolving]
  - Groin pain [Recovering/Resolving]
  - Pectus carinatum [Unknown]
  - Limb injury [Unknown]
  - Hypokinesia [Recovering/Resolving]
  - Body height increased [Unknown]

NARRATIVE: CASE EVENT DATE: 202003
